FAERS Safety Report 9162202 (Version 2)
Quarter: 2013Q3

REPORT INFORMATION
  Report Type: Spontaneous
  Country: US (occurrence: None)
  Receive Date: 20130222
  Receipt Date: 20130815
  Transmission Date: 20140515
  Serious: Yes (Other)
  Sender: FDA-Public Use
  Company Number: ADR-2012-01523

PATIENT
  Sex: Female

DRUGS (2)
  1. BACLOFEN [Suspect]
     Indication: MUSCLE SPASTICITY
     Route: 037
  2. SALINE [Concomitant]

REACTIONS (11)
  - Abasia [None]
  - Wheelchair user [None]
  - Faecal incontinence [None]
  - Muscular weakness [None]
  - Dysstasia [None]
  - Fall [None]
  - Back pain [None]
  - Gait disturbance [None]
  - Muscle spasticity [None]
  - Therapeutic response unexpected [None]
  - Muscular weakness [None]
